FAERS Safety Report 20837032 (Version 1)
Quarter: 2022Q2

REPORT INFORMATION
  Report Type: Spontaneous
  Country: RU (occurrence: RU)
  Receive Date: 20220517
  Receipt Date: 20220517
  Transmission Date: 20220720
  Serious: Yes (Other)
  Sender: FDA-Public Use
  Company Number: RU-ORGANON-O2205RUS001108

PATIENT
  Age: 45 Year
  Sex: Female

DRUGS (1)
  1. ETONOGESTREL [Suspect]
     Active Substance: ETONOGESTREL
     Dosage: 1 IMPLANT
     Route: 059

REACTIONS (3)
  - Adenocarcinoma of the cervix [Unknown]
  - Complication associated with device [Not Recovered/Not Resolved]
  - Incorrect product administration duration [Unknown]
